FAERS Safety Report 12673718 (Version 5)
Quarter: 2017Q2

REPORT INFORMATION
  Report Type: Spontaneous
  Country: US (occurrence: US)
  Receive Date: 20160822
  Receipt Date: 20170605
  Transmission Date: 20170830
  Serious: Yes (Other)
  Sender: FDA-Public Use
  Company Number: US-CELGENEUS-USA-2016083781

PATIENT
  Age: 51 Year
  Sex: Male

DRUGS (6)
  1. REVLIMID [Suspect]
     Active Substance: LENALIDOMIDE
     Indication: PLASMA CELL MYELOMA
     Dosage: 25 MILLIGRAM
     Route: 048
     Dates: start: 20160322
  2. DIPHENHYDRAMINE. [Concomitant]
     Active Substance: DIPHENHYDRAMINE
     Indication: PRURITUS
     Dosage: 50 MILLIGRAM
     Route: 048
  3. OXYCODONE [Concomitant]
     Active Substance: OXYCODONE
     Indication: PAIN
     Dosage: 30 MILLIGRAM
     Route: 048
  4. OXYCODONE [Concomitant]
     Active Substance: OXYCODONE
     Dosage: 80 MILLIGRAM
     Route: 048
  5. LORAZEPAM. [Concomitant]
     Active Substance: LORAZEPAM
     Indication: ANXIETY
     Dosage: 2 MILLIGRAM
     Route: 048
  6. SERTRALINE [Concomitant]
     Active Substance: SERTRALINE HYDROCHLORIDE
     Indication: AFFECTIVE DISORDER
     Dosage: 100 MILLIGRAM
     Route: 048

REACTIONS (1)
  - Suicidal ideation [Recovered/Resolved]

NARRATIVE: CASE EVENT DATE: 20160723
